FAERS Safety Report 5252990-5 (Version None)
Quarter: 2007Q1

REPORT INFORMATION
  Report Type: 
  Country: None (occurrence: None)
  Receive Date: 20070301
  Receipt Date: 20070220
  Transmission Date: 20070707
  Serious: Yes (Other)
  Sender: FDA-Public Use
  Company Number: US-ROCHE-483561

PATIENT

DRUGS (5)
  1. CELLCEPT [Suspect]
     Indication: LUPUS NEPHRITIS
     Dosage: FIRST COURSE.
     Dates: start: 20050715, end: 20060115
  2. CELLCEPT [Suspect]
     Dosage: SECOND COURSE.
     Dates: start: 20060831, end: 20061022
  3. BACTRIM [Concomitant]
     Dosage: TAKEN DURING FIRST COURSE OF CELLCEPT.
  4. ACYCLOVIR [Concomitant]
     Dosage: TAKEN DURING FIRST COURSE OF CELLCEPT.
  5. IMURAN [Concomitant]
     Indication: LUPUS NEPHRITIS
     Dates: start: 20060115

REACTIONS (1)
  - PREMATURE BABY [None]
